FAERS Safety Report 5521248-9 (Version None)
Quarter: 2007Q4

REPORT INFORMATION
  Report Type: 
  Country: None (occurrence: None)
  Receive Date: 20071119
  Receipt Date: 20070716
  Transmission Date: 20080405
  Serious: Yes (Hospitalization, Other)
  Sender: FDA-Public Use
  Company Number: US-ASTRAZENECA-2007UW16429

PATIENT
  Age: 509 Month
  Sex: Female
  Weight: 63.6 kg

DRUGS (17)
  1. SEROQUEL [Suspect]
     Indication: SLEEP DISORDER
     Route: 048
     Dates: start: 19970101
  2. PREDNISONE TAB [Concomitant]
     Dates: start: 19850101, end: 20030301
  3. ZOLOFT [Concomitant]
     Route: 048
  4. XANAX [Concomitant]
     Route: 048
  5. PERCOCET [Concomitant]
     Dosage: 5/325 MG ONE TABLET BID
     Route: 048
  6. METHADONE [Concomitant]
  7. D4T [Concomitant]
  8. 3TC [Concomitant]
  9. NELFINAVIR [Concomitant]
     Route: 048
     Dates: start: 19991001, end: 20000428
  10. EPIVIR [Concomitant]
     Route: 048
  11. ZERIT [Concomitant]
     Route: 048
  12. NEVIRAPINE [Concomitant]
     Dates: start: 20000401, end: 20000609
  13. ABACAVIR [Concomitant]
  14. MOTRIN [Concomitant]
  15. TORADOL [Concomitant]
  16. CHLORAL HYDRATE [Concomitant]
     Dates: start: 20020101
  17. WELLBUTRIN [Concomitant]

REACTIONS (31)
  - ANOREXIA [None]
  - BLOOD CORTISOL DECREASED [None]
  - BLOOD GLUCOSE FLUCTUATION [None]
  - CHEST PAIN [None]
  - CHILLS [None]
  - CONFUSIONAL STATE [None]
  - DIABETES MELLITUS [None]
  - DIARRHOEA [None]
  - DIZZINESS [None]
  - DRUG HYPERSENSITIVITY [None]
  - DRY MOUTH [None]
  - FEELING JITTERY [None]
  - HEADACHE [None]
  - HYPERHIDROSIS [None]
  - JOINT INJURY [None]
  - LIPODYSTROPHY ACQUIRED [None]
  - MUSCULOSKELETAL PAIN [None]
  - MUSCULOSKELETAL STIFFNESS [None]
  - NAUSEA [None]
  - NEUROPATHY PERIPHERAL [None]
  - OEDEMA PERIPHERAL [None]
  - OTITIS MEDIA [None]
  - PHARYNGITIS [None]
  - POSTURING [None]
  - THROMBOCYTOPENIA [None]
  - TREATMENT NONCOMPLIANCE [None]
  - TREMOR [None]
  - UPPER RESPIRATORY TRACT INFECTION [None]
  - VISION BLURRED [None]
  - VOMITING [None]
  - WEIGHT DECREASED [None]
